FAERS Safety Report 19792859 (Version 2)
Quarter: 2021Q3

REPORT INFORMATION
  Report Type: Spontaneous
  Country: CN (occurrence: CN)
  Receive Date: 20210906
  Receipt Date: 20210909
  Transmission Date: 20211014
  Serious: Yes (Hospitalization)
  Sender: FDA-Public Use
  Company Number: CN-PFIZER INC-202101084502

PATIENT
  Age: 45 Year
  Sex: Female

DRUGS (2)
  1. IBRANCE [Suspect]
     Active Substance: PALBOCICLIB
     Dosage: 1 DF, 1X/DAY
     Route: 048
     Dates: end: 20210814
  2. IBRANCE [Suspect]
     Active Substance: PALBOCICLIB
     Indication: BREAST CANCER METASTATIC
     Dosage: 1 DF (ONCE EVERY THREE DAYS)
     Route: 048

REACTIONS (6)
  - Hypoaesthesia oral [Recovering/Resolving]
  - Transaminases increased [Unknown]
  - Abdominal distension [Recovering/Resolving]
  - Ocular discomfort [Recovering/Resolving]
  - Memory impairment [Recovering/Resolving]
  - Product physical issue [Unknown]
